FAERS Safety Report 22238894 (Version 1)
Quarter: 2023Q2

REPORT INFORMATION
  Report Type: Spontaneous
  Country: JP (occurrence: JP)
  Receive Date: 20230421
  Receipt Date: 20230421
  Transmission Date: 20230722
  Serious: Yes (Other)
  Sender: FDA-Public Use
  Company Number: JP-CHUGAI-2023014296

PATIENT
  Age: 4 Decade
  Sex: Female

DRUGS (2)
  1. AVASTIN [Suspect]
     Active Substance: BEVACIZUMAB
     Indication: Hormone receptor positive breast cancer
     Dosage: UNK
     Route: 041
  2. PACLITAXEL [Concomitant]
     Active Substance: PACLITAXEL
     Indication: Hormone receptor positive breast cancer
     Dosage: UNK
     Route: 041

REACTIONS (1)
  - Neutrophil count decreased [Not Recovered/Not Resolved]
